FAERS Safety Report 7079394-7 (Version None)
Quarter: 2010Q4

REPORT INFORMATION
  Report Type: 
  Country: None (occurrence: None)
  Receive Date: 20101102
  Receipt Date: 20101018
  Transmission Date: 20110411
  Serious: Yes (Other)
  Sender: FDA-Public Use
  Company Number: DE-AMGEN-US416925

PATIENT

DRUGS (10)
  1. ETANERCEPT [Suspect]
     Indication: RHEUMATOID ARTHRITIS
     Dosage: 50 MG, QWK
     Route: 058
     Dates: start: 20090227, end: 20101001
  2. CORTISONE [Concomitant]
     Dosage: UNK UNK, UNK
  3. CORTISONE [Concomitant]
     Dosage: 2.5MG (FREQUENCY UNKNOWN)
  4. INSULIN [Concomitant]
     Dosage: UNK UNK, UNK
  5. INSULIN [Concomitant]
     Dosage: UNKNOWN
  6. METHOTREXATE SODIUM [Concomitant]
     Dosage: UNK UNK, UNK
     Route: 058
  7. METHOTREXATE SODIUM [Concomitant]
     Dosage: 15MG FREQUENCY UNKNOWN)
     Route: 058
  8. SYNTESTAN [Concomitant]
     Indication: RHEUMATOID ARTHRITIS
     Route: 048
     Dates: start: 20080501, end: 20101001
  9. LIPID MODIFYING AGENTS [Concomitant]
  10. ANTIHYPERTENSIVES [Concomitant]

REACTIONS (1)
  - BENIGN NEOPLASM OF SKIN [None]
